FAERS Safety Report 24034353 (Version 1)
Quarter: 2024Q3

REPORT INFORMATION
  Report Type: Report from Study
  Country: NG (occurrence: NG)
  Receive Date: 20240701
  Receipt Date: 20240701
  Transmission Date: 20241017
  Serious: Yes (Other)
  Sender: PFIZER
  Company Number: NG-PFIZER INC-202400197112

PATIENT

DRUGS (2)
  1. CABERGOLINE [Suspect]
     Active Substance: CABERGOLINE
     Indication: Prolactin-producing pituitary tumour
     Dosage: UNK
  2. BROMOCRIPTINE [Suspect]
     Active Substance: BROMOCRIPTINE
     Indication: Prolactin-producing pituitary tumour
     Dosage: UNK

REACTIONS (4)
  - Drug ineffective [Unknown]
  - Visual impairment [Unknown]
  - Ocular discomfort [Unknown]
  - Condition aggravated [Unknown]
